FAERS Safety Report 6135531-X (Version None)
Quarter: 2009Q1

REPORT INFORMATION
  Report Type: 
  Country: None (occurrence: None)
  Receive Date: 20090327
  Receipt Date: 20090320
  Transmission Date: 20090719
  Serious: Yes (Other)
  Sender: FDA-Public Use
  Company Number: B0566750A

PATIENT
  Sex: Female

DRUGS (7)
  1. TELZIR [Suspect]
     Indication: HIV INFECTION
     Route: 048
  2. EPIVIR [Suspect]
     Indication: HIV INFECTION
     Route: 048
  3. ZIAGEN [Suspect]
     Indication: HIV INFECTION
     Route: 048
  4. KIVEXA [Suspect]
     Indication: HIV INFECTION
     Route: 048
  5. NORVIR [Suspect]
     Indication: HIV INFECTION
     Route: 048
  6. REYATAZ [Suspect]
     Indication: HIV INFECTION
     Route: 048
  7. PREZISTA [Suspect]
     Indication: HIV INFECTION
     Route: 065

REACTIONS (3)
  - DRUG RESISTANCE [None]
  - HEPATOTOXICITY [None]
  - IMMUNE SYSTEM DISORDER [None]
